FAERS Safety Report 24268498 (Version 1)
Quarter: 2024Q3

REPORT INFORMATION
  Report Type: Spontaneous
  Country: US (occurrence: US)
  Receive Date: 20240830
  Receipt Date: 20240830
  Transmission Date: 20241016
  Serious: No
  Sender: BAYER
  Company Number: US-BAYER-2024A124032

PATIENT
  Age: 33 Year
  Sex: Female

DRUGS (14)
  1. MOXIFLOXACIN [Suspect]
     Active Substance: MOXIFLOXACIN
     Indication: Product used for unknown indication
  2. TYLENOL [Concomitant]
     Active Substance: ACETAMINOPHEN
     Route: 048
  3. ALBUTEROL [Concomitant]
     Active Substance: ALBUTEROL
  4. XANAX [Concomitant]
     Active Substance: ALPRAZOLAM
     Route: 048
  5. ASTEPRO [Concomitant]
     Active Substance: AZELASTINE HYDROCHLORIDE
  6. VOLTAREN [Concomitant]
     Active Substance: DICLOFENAC SODIUM
     Route: 061
  7. CYMBALTA [Concomitant]
     Active Substance: DULOXETINE HYDROCHLORIDE
  8. EPIPEN [Concomitant]
     Active Substance: EPINEPHRINE
  9. NEURONTIN [Concomitant]
     Active Substance: GABAPENTIN
     Route: 048
  10. LUPRON DEPOT [Concomitant]
     Active Substance: LEUPROLIDE ACETATE
     Dosage: UNK
  11. CLARITIN [Concomitant]
     Active Substance: LORATADINE
     Route: 048
  12. ROBAXIN [Concomitant]
     Active Substance: METHOCARBAMOL
     Route: 048
  13. ZOFRAN [Concomitant]
     Active Substance: ONDANSETRON HYDROCHLORIDE
     Route: 048
  14. SUMATRIPTAN [Concomitant]
     Active Substance: SUMATRIPTAN\SUMATRIPTAN SUCCINATE

REACTIONS (1)
  - Nausea [None]
